FAERS Safety Report 24981180 (Version 2)
Quarter: 2025Q2

REPORT INFORMATION
  Report Type: Spontaneous
  Country: US (occurrence: US)
  Receive Date: 20250218
  Receipt Date: 20250408
  Transmission Date: 20250717
  Serious: Yes (Other)
  Sender: OTSUKA
  Company Number: US-MMM-Otsuka-VRYUOWTF

PATIENT
  Age: 88 Year
  Sex: Male

DRUGS (4)
  1. REXULTI [Suspect]
     Active Substance: BREXPIPRAZOLE
     Indication: Agitation
     Route: 065
     Dates: start: 2025
  2. REXULTI [Suspect]
     Active Substance: BREXPIPRAZOLE
     Indication: Dementia Alzheimer^s type
  3. SEROQUEL [Suspect]
     Active Substance: QUETIAPINE FUMARATE
     Indication: Product used for unknown indication
     Dosage: 25 MG, BID
     Route: 065
  4. SEROQUEL [Suspect]
     Active Substance: QUETIAPINE FUMARATE
     Dosage: UNK, BID (12.5MG IN THE MORNING AND 50MG AT NIGHT)
     Route: 065

REACTIONS (7)
  - Hallucination [Unknown]
  - Aggression [Unknown]
  - Depressive symptom [Unknown]
  - Psychotic disorder [Unknown]
  - Agitation [Unknown]
  - Sedation [Unknown]
  - Drug ineffective [Unknown]
